FAERS Safety Report 5625153-9 (Version None)
Quarter: 2008Q1

REPORT INFORMATION
  Report Type: 
  Country: None (occurrence: None)
  Receive Date: 20080208
  Receipt Date: 20080128
  Transmission Date: 20080703
  Serious: Yes (Other)
  Sender: FDA-Public Use
  Company Number: TUK2008A00009

PATIENT
  Age: 65 Year
  Sex: Male

DRUGS (3)
  1. ACTOS [Suspect]
     Dates: start: 20080126, end: 20080126
  2. GLUCOPHAGE [Concomitant]
  3. DIAMICRON (GLICLAZIDE) [Concomitant]

REACTIONS (4)
  - BLOOD GLUCOSE INCREASED [None]
  - DYSSTASIA [None]
  - EYE ROLLING [None]
  - GLYCOSYLATED HAEMOGLOBIN INCREASED [None]
